FAERS Safety Report 7516125-8 (Version None)
Quarter: 2011Q2

REPORT INFORMATION
  Report Type: 
  Country: None (occurrence: None)
  Receive Date: 20110601
  Receipt Date: 20110524
  Transmission Date: 20111010
  Serious: Yes (Life-Threatening)
  Sender: FDA-Public Use
  Company Number: GB-ROCHE-779074

PATIENT
  Age: 19 Year

DRUGS (4)
  1. LAMICTAL [Concomitant]
  2. TRILEPTAL [Concomitant]
  3. TAMIFLU [Suspect]
     Dosage: DOSE, FREQUENCY AND FORM: UNKNOWN
     Route: 048
     Dates: start: 20090703, end: 20090706
  4. PHENYTOIN SODIUM [Concomitant]

REACTIONS (1)
  - CONVULSION [None]
